FAERS Safety Report 17289825 (Version 2)
Quarter: 2020Q2

REPORT INFORMATION
  Report Type: Spontaneous
  Country: CA (occurrence: CA)
  Receive Date: 20200120
  Receipt Date: 20200408
  Transmission Date: 20200713
  Serious: Yes (Other)
  Sender: FDA-Public Use
  Company Number: CA-PURDUE-CAN-2020-0010500

PATIENT
  Age: 45 Year
  Sex: Male
  Weight: 81 kg

DRUGS (16)
  1. BEVACIZUMAB. [Suspect]
     Active Substance: BEVACIZUMAB
     Indication: OLIGODENDROGLIOMA
     Dosage: 1500 MG, UNK (1 EVERY 3 WEEKS)
     Route: 042
  2. RANITIDINE. [Concomitant]
     Active Substance: RANITIDINE
  3. SENOKOT [Concomitant]
     Active Substance: SENNOSIDES
  4. LEVETIRACETAM. [Concomitant]
     Active Substance: LEVETIRACETAM
  5. METHADONE HYDROCHLORIDE. [Suspect]
     Active Substance: METHADONE HYDROCHLORIDE
     Indication: PRODUCT USED FOR UNKNOWN INDICATION
     Dosage: UNK
     Route: 065
  6. TOPIRAMATE. [Concomitant]
     Active Substance: TOPIRAMATE
  7. AVASTIN                            /00848101/ [Suspect]
     Active Substance: SIMVASTATIN
     Indication: OLIGODENDROGLIOMA
     Dosage: UNK, 1 EVERY 3 WEEKS
     Route: 065
  8. DALTEPARIN SODIUM [Concomitant]
     Active Substance: DALTEPARIN SODIUM
  9. DEXAMETHASONE. [Concomitant]
     Active Substance: DEXAMETHASONE
  10. FLUCONAZOLE. [Concomitant]
     Active Substance: FLUCONAZOLE
     Dosage: 100 MG, UNK
  11. LORAZEPAM. [Concomitant]
     Active Substance: LORAZEPAM
  12. DILANTIN [Concomitant]
     Active Substance: PHENYTOIN
  13. TEMODAL [Suspect]
     Active Substance: TEMOZOLOMIDE
     Indication: PRODUCT USED FOR UNKNOWN INDICATION
     Dosage: UNK
     Route: 065
  14. MIRTAZAPINE. [Concomitant]
     Active Substance: MIRTAZAPINE
  15. MORPHINE SULFATE. [Suspect]
     Active Substance: MORPHINE SULFATE
     Indication: PRODUCT USED FOR UNKNOWN INDICATION
     Dosage: UNK
     Route: 065
  16. AVASTIN                            /00848101/ [Suspect]
     Active Substance: SIMVASTATIN
     Indication: BRAIN CANCER METASTATIC
     Dosage: UNK, 1 EVERY 3 WEEKS
     Route: 065

REACTIONS (20)
  - Blood pressure increased [Not Recovered/Not Resolved]
  - Candida infection [Not Recovered/Not Resolved]
  - Hemiparesis [Not Recovered/Not Resolved]
  - Nervous system disorder [Not Recovered/Not Resolved]
  - Weight decreased [Not Recovered/Not Resolved]
  - Nerve injury [Not Recovered/Not Resolved]
  - Body temperature decreased [Not Recovered/Not Resolved]
  - Bone marrow disorder [Not Recovered/Not Resolved]
  - Therapy non-responder [Not Recovered/Not Resolved]
  - Bone marrow failure [Not Recovered/Not Resolved]
  - Gastrointestinal haemorrhage [Not Recovered/Not Resolved]
  - Blood pressure diastolic increased [Not Recovered/Not Resolved]
  - Confusional state [Not Recovered/Not Resolved]
  - Dyspepsia [Not Recovered/Not Resolved]
  - Headache [Not Recovered/Not Resolved]
  - Weight increased [Not Recovered/Not Resolved]
  - Epistaxis [Not Recovered/Not Resolved]
  - Haemorrhage [Not Recovered/Not Resolved]
  - Incoherent [Not Recovered/Not Resolved]
  - Rectal haemorrhage [Not Recovered/Not Resolved]
